FAERS Safety Report 8154645-6 (Version None)
Quarter: 2012Q1

REPORT INFORMATION
  Report Type: 
  Country: None (occurrence: None)
  Receive Date: 20120221
  Receipt Date: 20120218
  Transmission Date: 20120608
  Serious: Yes (Death)
  Sender: FDA-Public Use
  Company Number: HK-PFIZER INC-2012044090

PATIENT
  Age: 79 Year
  Sex: Male

DRUGS (1)
  1. CARDURA [Suspect]
     Dosage: UNK

REACTIONS (1)
  - DEATH [None]
